FAERS Safety Report 5466591-7 (Version None)
Quarter: 2007Q3

REPORT INFORMATION
  Report Type: 
  Country: None (occurrence: None)
  Receive Date: 20070925
  Receipt Date: 20070917
  Transmission Date: 20080115
  Serious: Yes (Other)
  Sender: FDA-Public Use
  Company Number: PHEH2007US12389

PATIENT
  Sex: Female

DRUGS (2)
  1. ZELNORM [Suspect]
     Indication: CONSTIPATION
     Dosage: UNK, BID
     Route: 048
     Dates: start: 20030101, end: 20070301
  2. IBUPROFEN [Concomitant]
     Indication: CARDIOVASCULAR INSUFFICIENCY

REACTIONS (2)
  - CARDIOMEGALY [None]
  - DYSPNOEA [None]
